FAERS Safety Report 22277458 (Version 3)
Quarter: 2023Q2

REPORT INFORMATION
  Report Type: Other
  Country: US (occurrence: None)
  Receive Date: 20230503
  Receipt Date: 20230613
  Transmission Date: 20230721
  Serious: Yes (Hospitalization)
  Sender: FDA-Public Use
  Company Number: US-ROCHE-3339687

PATIENT
  Age: 65 Year
  Sex: Male

DRUGS (11)
  1. OCRELIZUMAB [Suspect]
     Active Substance: OCRELIZUMAB
     Indication: Multiple sclerosis
     Dosage: FIRST HALF OF FIRST DOSE
     Route: 065
     Dates: start: 20200922
  2. OCRELIZUMAB [Suspect]
     Active Substance: OCRELIZUMAB
     Dosage: SECOND HALF OF FIRST DOSE
     Route: 065
     Dates: start: 20201006
  3. OCRELIZUMAB [Suspect]
     Active Substance: OCRELIZUMAB
     Route: 065
     Dates: start: 20210406
  4. OCRELIZUMAB [Suspect]
     Active Substance: OCRELIZUMAB
     Route: 065
     Dates: start: 20221202
  5. LISINOPRIL [Concomitant]
     Active Substance: LISINOPRIL
     Dates: start: 20050403
  6. PROSCAR [Concomitant]
     Active Substance: FINASTERIDE
     Dates: start: 20191205
  7. LASIX [Concomitant]
     Active Substance: FUROSEMIDE
     Dates: start: 20150604
  8. COUMADIN [Concomitant]
     Active Substance: WARFARIN SODIUM
     Dates: start: 20111221
  9. FLOMAX [Concomitant]
     Active Substance: TAMSULOSIN HYDROCHLORIDE
     Dates: start: 20200123
  10. FLEXERIL [Concomitant]
     Active Substance: CYCLOBENZAPRINE HYDROCHLORIDE
     Dates: start: 20191205
  11. DANTROLENE [Concomitant]
     Active Substance: DANTROLENE
     Dates: start: 20190718, end: 20190917

REACTIONS (1)
  - Cellulitis [Recovered/Resolved]

NARRATIVE: CASE EVENT DATE: 20230227
